FAERS Safety Report 7384033-1 (Version None)
Quarter: 2011Q1

REPORT INFORMATION
  Report Type: 
  Country: None (occurrence: None)
  Receive Date: 20110322
  Receipt Date: 20110310
  Transmission Date: 20110831
  Serious: Yes (Hospitalization)
  Sender: FDA-Public Use
  Company Number: 005055

PATIENT
  Sex: Female

DRUGS (7)
  1. VICODIN [Concomitant]
  2. AMLODIPINE [Concomitant]
  3. DIOVAN [Concomitant]
  4. ARAVA [Concomitant]
  5. CERTOLIZUMAB PEGOL [Suspect]
     Indication: RHEUMATOID ARTHRITIS
     Dosage: 200 MG 1X2 WEEKS, SUBCUTANEOUS
     Route: 058
     Dates: start: 20090928, end: 20100113
  6. CERTOLIZUMAB PEGOL [Suspect]
     Indication: RHEUMATOID ARTHRITIS
     Dosage: 200 MG 1X2 WEEKS, SUBCUTANEOUS
     Route: 058
     Dates: start: 20100204
  7. SIMVASTATIN [Concomitant]

REACTIONS (28)
  - ALANINE AMINOTRANSFERASE INCREASED [None]
  - BLOOD CHLORIDE DECREASED [None]
  - SUPRAVENTRICULAR TACHYARRHYTHMIA [None]
  - PALLOR [None]
  - OCCULT BLOOD POSITIVE [None]
  - BLOOD GLUCOSE INCREASED [None]
  - FATIGUE [None]
  - HYPERCOAGULATION [None]
  - MYOGLOBIN BLOOD INCREASED [None]
  - RED BLOOD CELL COUNT DECREASED [None]
  - BLOOD ALBUMIN DECREASED [None]
  - HAEMOGLOBIN DECREASED [None]
  - PULMONARY EMBOLISM [None]
  - ASPARTATE AMINOTRANSFERASE INCREASED [None]
  - GASTRITIS [None]
  - DEEP VEIN THROMBOSIS [None]
  - BLOOD ALKALINE PHOSPHATASE INCREASED [None]
  - BODY TEMPERATURE INCREASED [None]
  - OXYGEN SATURATION DECREASED [None]
  - ASTHENIA [None]
  - RUSSELL'S VIPER VENOM TIME ABNORMAL [None]
  - MYOCARDIAL INFARCTION [None]
  - BLOOD CREATININE INCREASED [None]
  - LOBAR PNEUMONIA [None]
  - ANTITHROMBIN III DEFICIENCY [None]
  - RENAL FAILURE ACUTE [None]
  - CONVULSION [None]
  - DIARRHOEA [None]
